FAERS Safety Report 17169218 (Version 1)
Quarter: 2019Q4

REPORT INFORMATION
  Report Type: Spontaneous
  Country: US (occurrence: US)
  Receive Date: 20191126
  Receipt Date: 20191126
  Transmission Date: 20200122
  Serious: No
  Sender: FDA-Public Use
  Company Number: None

PATIENT
  Sex: Male

DRUGS (1)
  1. AVONEX PEN [Suspect]
     Active Substance: INTERFERON BETA-1A
     Indication: MULTIPLE SCLEROSIS
     Dosage: ?          OTHER STRENGTH:30MCG/.5M;OTHER DOSE:0.5 M;OTHER FREQUENCY:ONCE EVERY 28 DAYS;?
     Route: 030
     Dates: start: 20190822, end: 201910

REACTIONS (2)
  - Vomiting [None]
  - Therapy cessation [None]
